FAERS Safety Report 25926178 (Version 1)
Quarter: 2025Q4

REPORT INFORMATION
  Report Type: Spontaneous
  Country: US (occurrence: None)
  Receive Date: 20251014
  Receipt Date: 20251014
  Transmission Date: 20260117
  Serious: Yes (Hospitalization)
  Sender: FDA-CTU
  Company Number: None

PATIENT
  Sex: Male
  Weight: 81.45 kg

DRUGS (2)
  1. NOVOSEVEN RT [Suspect]
     Active Substance: COAGULATION FACTOR VIIA RECOMBINANT HUMAN
     Indication: Factor VIII deficiency
     Dosage: 8 MG AS NEEEDED INTRAVENOUS
     Route: 042
     Dates: start: 20230101
  2. BLUNT FILTER NEEDL 18GX1-1/2 [Concomitant]

REACTIONS (2)
  - Irritable bowel syndrome [None]
  - Arthralgia [None]
